FAERS Safety Report 24096853 (Version 1)
Quarter: 2024Q3

REPORT INFORMATION
  Report Type: Spontaneous
  Country: US (occurrence: US)
  Receive Date: 20240716
  Receipt Date: 20240716
  Transmission Date: 20241017
  Serious: Yes (Other)
  Sender: GRIFOLS
  Company Number: US-GRIFOLS-BIG0025003

PATIENT
  Sex: Female

DRUGS (4)
  1. GAMUNEX-C [Suspect]
     Active Substance: HUMAN IMMUNOGLOBULIN G
     Indication: Immunodeficiency common variable
     Dosage: 30 GRAM, Q.4WK.
     Route: 042
     Dates: start: 2021
  2. BENADRYL [Concomitant]
     Active Substance: DIPHENHYDRAMINE HYDROCHLORIDE
     Indication: Premedication
  3. TYLENOL [Concomitant]
     Active Substance: ACETAMINOPHEN
     Indication: Premedication
  4. FAMOTIDINE [Concomitant]
     Active Substance: FAMOTIDINE
     Indication: Premedication

REACTIONS (4)
  - Meningitis aseptic [Unknown]
  - Migraine [Not Recovered/Not Resolved]
  - Nausea [Unknown]
  - Fatigue [Unknown]
